FAERS Safety Report 7131209-4 (Version None)
Quarter: 2010Q4

REPORT INFORMATION
  Report Type: 
  Country: None (occurrence: None)
  Receive Date: 20101201
  Receipt Date: 20101119
  Transmission Date: 20110411
  Serious: Yes (Other)
  Sender: FDA-Public Use
  Company Number: BR-PFIZER INC-2010154439

PATIENT

DRUGS (1)
  1. LYRICA [Suspect]
     Dosage: 75 MG, 1X/DAY
     Route: 048

REACTIONS (1)
  - HYPERTENSIVE CRISIS [None]
